FAERS Safety Report 4631002-8 (Version None)
Quarter: 2005Q2

REPORT INFORMATION
  Report Type: 
  Country: None (occurrence: None)
  Receive Date: 20050406
  Receipt Date: 20050406
  Transmission Date: 20051028
  Serious: Yes (Death)
  Sender: FDA-Public Use
  Company Number: None

PATIENT
  Sex: Female

DRUGS (1)
  1. RISENDRONATE      35MG [Suspect]
     Indication: OSTEOPOROSIS
     Dosage: 35MG  QWEEK    ORAL
     Route: 048

REACTIONS (4)
  - HAEMATEMESIS [None]
  - OESOPHAGEAL ULCER HAEMORRHAGE [None]
  - PNEUMONIA ASPIRATION [None]
  - POST PROCEDURAL COMPLICATION [None]
